FAERS Safety Report 6491213-6 (Version None)
Quarter: 2009Q4

REPORT INFORMATION
  Report Type: 
  Country: None (occurrence: None)
  Receive Date: 20091211
  Receipt Date: 20091130
  Transmission Date: 20100525
  Serious: Yes (Hospitalization)
  Sender: FDA-Public Use
  Company Number: PHHY2009JP50638

PATIENT
  Sex: Male

DRUGS (4)
  1. TEGRETOL [Suspect]
     Indication: EPILEPSY
     Dosage: UNK
     Route: 048
     Dates: start: 20090101
  2. VALPROATE SODIUM [Concomitant]
     Indication: EPILEPSY
     Route: 048
  3. ANTIBIOTICS [Concomitant]
  4. DEXAMETHASONE TAB [Concomitant]
     Dosage: 10 MG/M2

REACTIONS (6)
  - HISTIOCYTOSIS HAEMATOPHAGIC [None]
  - HUMAN HERPES VIRUS 6 SEROLOGY POSITIVE [None]
  - HUMAN HERPESVIRUS 7 INFECTION [None]
  - HYPERTHERMIA [None]
  - LYMPHADENOPATHY [None]
  - SERUM FERRITIN INCREASED [None]
